FAERS Safety Report 4390719-3 (Version None)
Quarter: 2004Q2

REPORT INFORMATION
  Report Type: 
  Country: None (occurrence: None)
  Receive Date: 20040629
  Receipt Date: 20040618
  Transmission Date: 20050107
  Serious: Yes (Death, Other)
  Sender: FDA-Public Use
  Company Number: USA-2003-0009419

PATIENT
  Age: 47 Year
  Sex: Male

DRUGS (4)
  1. OXYCONTIN [Suspect]
     Indication: PAIN
     Dates: start: 20000701, end: 20010601
  2. OXYIR (OXYCODONE HYDROCHLORIDE) [Concomitant]
  3. XANAX [Concomitant]
  4. OXYCODONE HCL [Concomitant]

REACTIONS (20)
  - ALCOHOL POISONING [None]
  - CARDIO-RESPIRATORY ARREST [None]
  - COMA [None]
  - DEPENDENCE [None]
  - DEPRESSED LEVEL OF CONSCIOUSNESS [None]
  - DEPRESSION [None]
  - DIARRHOEA [None]
  - DRUG WITHDRAWAL SYNDROME [None]
  - HEADACHE [None]
  - HYPERHIDROSIS [None]
  - INSOMNIA [None]
  - IRRITABILITY [None]
  - NAUSEA [None]
  - NERVOUSNESS [None]
  - OVERDOSE [None]
  - SNORING [None]
  - TREMOR [None]
  - VENTRICULAR FIBRILLATION [None]
  - VOMITING [None]
  - WEIGHT DECREASED [None]
